FAERS Safety Report 8843243 (Version 1)
Quarter: 2012Q4

REPORT INFORMATION
  Report Type: 
  Country: CN (occurrence: CN)
  Receive Date: 20121016
  Receipt Date: 20121016
  Transmission Date: 20130627
  Serious: Yes (Death, Other)
  Sender: FDA-Public Use
  Company Number: PHHY2012CN091685

PATIENT
  Age: 33 Year
  Sex: Male

DRUGS (16)
  1. CICLOSPORIN [Suspect]
     Indication: PROPHYLAXIS AGAINST GRAFT VERSUS HOST DISEASE
     Dosage: 1.5 mg/kg, over 24 hours
  2. METHOTREXATE [Concomitant]
     Indication: PROPHYLAXIS AGAINST GRAFT VERSUS HOST DISEASE
     Dosage: 15 mg/m2, on day +1
     Route: 042
  3. METHOTREXATE [Concomitant]
     Dosage: 10 mg/m2, on day +3, +6 and +11
     Route: 042
  4. METHOTREXATE [Concomitant]
     Route: 048
  5. MYCOPHENOLATE MOFETIL [Concomitant]
     Indication: PROPHYLAXIS AGAINST GRAFT VERSUS HOST DISEASE
     Dosage: 1 g, per day after day +7
  6. MONOCLONAL ANTIBODIES (ANTI-CD25) [Concomitant]
     Indication: PROPHYLAXIS AGAINST GRAFT VERSUS HOST DISEASE
     Dosage: 20 mg, ONCE/SINGLE, over 40 min 2 hours before transplant
  7. MONOCLONAL ANTIBODIES (ANTI-CD25) [Concomitant]
     Dosage: 20 mg, ONCE/SINGLE,on day+4
  8. ANTITHYMOCYTE IMMUNOGLOBULIN [Concomitant]
     Indication: PROPHYLAXIS AGAINST GRAFT VERSUS HOST DISEASE
     Dosage: 5 mg/kg, per day
  9. GRANULOCYTE COLONY STIMULATING FACTOR [Concomitant]
  10. FLUCONAZOLE [Concomitant]
     Indication: ANTIFUNGAL PROPHYLAXIS
  11. GANCICLOVIR [Concomitant]
     Indication: ANTIVIRAL PROPHYLAXIS
  12. MESNA [Concomitant]
     Indication: PROPHYLAXIS
  13. GAMMA GLOBULIN [Concomitant]
     Indication: PROPHYLAXIS
     Route: 041
  14. CYTARABINE [Concomitant]
     Indication: SURGICAL PRECONDITIONING
  15. RADIOTHERAPY [Concomitant]
     Indication: SURGICAL PRECONDITIONING
  16. CYCLOPHOSPHAMIDE [Concomitant]
     Indication: SURGICAL PRECONDITIONING

REACTIONS (4)
  - Lung disorder [Fatal]
  - Liver injury [Recovered/Resolved]
  - Blood bilirubin increased [Recovered/Resolved]
  - Transaminases increased [Recovered/Resolved]
